FAERS Safety Report 17768830 (Version 2)
Quarter: 2024Q1

REPORT INFORMATION
  Report Type: Spontaneous
  Country: FR (occurrence: FR)
  Receive Date: 20200512
  Receipt Date: 20240302
  Transmission Date: 20240410
  Serious: Yes (Other)
  Sender: FDA-Public Use
  Company Number: FR-AFSSAPS-AN20200541

PATIENT
  Age: 2 Year
  Sex: Female
  Weight: 13 kg

DRUGS (4)
  1. AMOXICILLIN [Suspect]
     Active Substance: AMOXICILLIN
     Indication: Otitis media acute
     Dosage: 1050 MILLIGRAM, ONCE A DAY
     Route: 048
     Dates: start: 20200325
  2. ECONAZOLE [Suspect]
     Active Substance: ECONAZOLE
     Indication: Fungal skin infection
     Dosage: UNK
     Route: 003
     Dates: start: 20200306
  3. OFLOXACIN [Suspect]
     Active Substance: OFLOXACIN
     Indication: Otitis media acute
     Dosage: 2 DOSAGE FORM, ONCE A DAY
     Route: 001
     Dates: start: 20200325
  4. MEKINIST [Suspect]
     Active Substance: TRAMETINIB DIMETHYL SULFOXIDE
     Indication: Optic glioma
     Dosage: 0.35 MILLIGRAM/KILOGRAM, ONCE A DAY
     Route: 048
     Dates: start: 20191213

REACTIONS (1)
  - Stress fracture [Recovering/Resolving]

NARRATIVE: CASE EVENT DATE: 20200407
